FAERS Safety Report 21825653 (Version 1)
Quarter: 2023Q1

REPORT INFORMATION
  Report Type: Report from Study
  Country: US (occurrence: US)
  Receive Date: 20230105
  Receipt Date: 20230105
  Transmission Date: 20230417
  Serious: No
  Sender: FDA-Public Use
  Company Number: US-ACADIA PHARMACEUTICALS INC.-ACA-2022-PIM-004324

PATIENT
  Sex: Female

DRUGS (1)
  1. NUPLAZID [Suspect]
     Active Substance: PIMAVANSERIN TARTRATE
     Indication: Dementia with Lewy bodies
     Dosage: UNK
     Route: 065

REACTIONS (3)
  - Off label use [Not Recovered/Not Resolved]
  - Gait disturbance [Not Recovered/Not Resolved]
  - Hallucination [Not Recovered/Not Resolved]
